FAERS Safety Report 8955646 (Version 2)
Quarter: 2012Q4

REPORT INFORMATION
  Report Type: 
  Country: US (occurrence: US)
  Receive Date: 20121210
  Receipt Date: 20121220
  Transmission Date: 20130627
  Serious: Yes (Other)
  Sender: FDA-Public Use
  Company Number: US-US-EMD SERONO, INC.-7179988

PATIENT
  Age: 44 Year
  Sex: Female
  Weight: 103 kg

DRUGS (6)
  1. REBIF [Suspect]
     Indication: MULTIPLE SCLEROSIS
     Route: 058
     Dates: start: 20091003
  2. REBIF [Suspect]
     Route: 058
  3. AMITRIPTYLINE [Concomitant]
     Indication: SLEEP DISORDER
     Route: 048
     Dates: start: 20111019
  4. LISINOPRIL [Concomitant]
     Indication: HYPERTENSION
     Dosage: one half in a.m and one half in p.m
     Route: 048
     Dates: start: 20120923
  5. HYDROCHLOROTHIAZIDE [Concomitant]
     Indication: HYPERTENSION
     Route: 048
     Dates: start: 20120614
  6. IBUPROFEN [Concomitant]
     Indication: PAIN
     Dosage: two to three times/day

REACTIONS (10)
  - Squamous cell carcinoma of skin [Recovered/Resolved]
  - Benign breast neoplasm [Recovered/Resolved]
  - Bronchitis [Recovering/Resolving]
  - Swelling face [Unknown]
  - Menstruation irregular [Recovered/Resolved]
  - Multiple sclerosis relapse [Unknown]
  - Feeling abnormal [Unknown]
  - Influenza like illness [Unknown]
  - Injection site erythema [Unknown]
  - Pain [Unknown]
